FAERS Safety Report 19570952 (Version 2)
Quarter: 2021Q3

REPORT INFORMATION
  Report Type: Report from Study
  Country: US (occurrence: US)
  Receive Date: 20210715
  Receipt Date: 20210829
  Transmission Date: 20211014
  Serious: Yes (Death, Other)
  Sender: FDA-Public Use
  Company Number: NVSC2021US159214

PATIENT
  Age: 49 Year
  Sex: Male
  Weight: 124.7 kg

DRUGS (5)
  1. ENTRESTO [Suspect]
     Active Substance: SACUBITRIL\VALSARTAN
     Indication: CARDIOMYOPATHY
     Dosage: 200 MG, BID
     Route: 048
     Dates: start: 20200820
  2. CARVEDILOL. [Concomitant]
     Active Substance: CARVEDILOL
     Indication: PRODUCT USED FOR UNKNOWN INDICATION
     Dosage: 12.5 MG, BID
     Route: 048
  3. FUROSEMIDE. [Concomitant]
     Active Substance: FUROSEMIDE
     Indication: WEIGHT INCREASED
     Dosage: 40 MG, QD
     Route: 048
  4. SPIRONOLACTONE. [Concomitant]
     Active Substance: SPIRONOLACTONE
     Indication: PRODUCT USED FOR UNKNOWN INDICATION
     Dosage: 25 MG, QD
     Route: 048
  5. POTASSIUM CHLORIDE. [Concomitant]
     Active Substance: POTASSIUM CHLORIDE
     Indication: PRODUCT USED FOR UNKNOWN INDICATION
     Dosage: 10 MEQ, QD (EXTENDED RELEASE)
     Route: 065

REACTIONS (16)
  - Hypopnoea [Unknown]
  - Cardiac arrest [Fatal]
  - Cardiac failure [Unknown]
  - Ventricular tachycardia [Unknown]
  - Obesity [Unknown]
  - Cyanosis [Unknown]
  - Sudden cardiac death [Fatal]
  - Congestive cardiomyopathy [Unknown]
  - Apnoea [Unknown]
  - Pupillary reflex impaired [Unknown]
  - Depressed level of consciousness [Unknown]
  - Chest pain [Unknown]
  - Product use in unapproved indication [Unknown]
  - Pulseless electrical activity [Unknown]
  - Drug abuse [Unknown]
  - Organ failure [Unknown]

NARRATIVE: CASE EVENT DATE: 20210701
